FAERS Safety Report 9803213 (Version 1)
Quarter: 2014Q1

REPORT INFORMATION
  Report Type: Spontaneous
  Country: US (occurrence: None)
  Receive Date: 20140107
  Receipt Date: 20140107
  Transmission Date: 20141002
  Serious: Yes (Other)
  Sender: FDA-Public Use
  Company Number: None

PATIENT
  Age: 49 Year
  Sex: Male
  Weight: 97.52 kg

DRUGS (1)
  1. CIPROFLOXACIN 500 MG COBALT [Suspect]
     Indication: COLITIS
     Dosage: 1 TABLET
     Route: 048
     Dates: start: 20131231, end: 20140101

REACTIONS (3)
  - Palpitations [None]
  - Dizziness [None]
  - Atrial fibrillation [None]
